FAERS Safety Report 21599700 (Version 3)
Quarter: 2024Q2

REPORT INFORMATION
  Report Type: Spontaneous
  Country: PT (occurrence: PT)
  Receive Date: 20221115
  Receipt Date: 20240613
  Transmission Date: 20240716
  Serious: Yes (Hospitalization, Other)
  Sender: FDA-Public Use
  Company Number: PT-SA-2022SA446492

PATIENT
  Age: 84 Year
  Sex: Female

DRUGS (1)
  1. AMIODARONE [Suspect]
     Active Substance: AMIODARONE
     Indication: Atrial fibrillation
     Dosage: 200 MILLIGRAM, ONCE A DAY
     Route: 065

REACTIONS (9)
  - Tachypnoea [Recovering/Resolving]
  - Dyspnoea [Recovering/Resolving]
  - Leukocytosis [Unknown]
  - Oedema peripheral [Unknown]
  - Condition aggravated [Recovering/Resolving]
  - Pneumonitis [Recovering/Resolving]
  - Pneumonia [Unknown]
  - Pneumonitis chemical [Unknown]
  - Cardiac failure [Unknown]
